FAERS Safety Report 4978824-1 (Version None)
Quarter: 2006Q2

REPORT INFORMATION
  Report Type: 
  Country: None (occurrence: None)
  Receive Date: 20060417
  Receipt Date: 20060331
  Transmission Date: 20061013
  Serious: Yes (Other)
  Sender: FDA-Public Use
  Company Number: DSA_27923_2006

PATIENT
  Age: 44 Year
  Sex: Female

DRUGS (1)
  1. TAVOR [Suspect]
     Dosage: 5 MG ONCE PO
     Route: 048
     Dates: start: 20060315, end: 20060315

REACTIONS (4)
  - FATIGUE [None]
  - INTENTIONAL OVERDOSE [None]
  - SUICIDE ATTEMPT [None]
  - TACHYCARDIA [None]
